FAERS Safety Report 4579437-6 (Version None)
Quarter: 2005Q1

REPORT INFORMATION
  Report Type: 
  Country: None (occurrence: None)
  Receive Date: 20050209
  Receipt Date: 20050121
  Transmission Date: 20050727
  Serious: Yes (Other)
  Sender: FDA-Public Use
  Company Number: USA050188895

PATIENT
  Age: 47 Year
  Sex: Female

DRUGS (1)
  1. SARAFEM [Suspect]
     Indication: PROGESTERONE DECREASED
     Dates: end: 20031101

REACTIONS (4)
  - CEREBROVASCULAR ACCIDENT [None]
  - DEMENTIA ALZHEIMER'S TYPE [None]
  - SENSORY LOSS [None]
  - TRANSIENT ISCHAEMIC ATTACK [None]
